FAERS Safety Report 6867404-9 (Version None)
Quarter: 2010Q3

REPORT INFORMATION
  Report Type: 
  Country: None (occurrence: None)
  Receive Date: 20100722
  Receipt Date: 20100719
  Transmission Date: 20110219
  Serious: Yes (Hospitalization)
  Sender: FDA-Public Use
  Company Number: FR-BRISTOL-MYERS SQUIBB COMPANY-15200363

PATIENT
  Age: 81 Year
  Sex: Male

DRUGS (5)
  1. PRAVIGARD PAC (COPACKAGED) [Suspect]
     Dosage: 1 DF= 1 TAB
     Route: 048
     Dates: start: 20080527, end: 20080529
  2. PREVISCAN [Concomitant]
  3. NEXIUM [Concomitant]
  4. TARDYFERON [Concomitant]
  5. FORLAX [Concomitant]
     Dosage: MACROGOL 4000

REACTIONS (4)
  - EOSINOPHILIA [None]
  - PURPURA [None]
  - RASH MACULO-PAPULAR [None]
  - TOXIC SKIN ERUPTION [None]
